FAERS Safety Report 4972951-0 (Version None)
Quarter: 2006Q2

REPORT INFORMATION
  Report Type: 
  Country: None (occurrence: None)
  Receive Date: 20060410
  Receipt Date: 20060327
  Transmission Date: 20061013
  Serious: Yes (Hospitalization)
  Sender: FDA-Public Use
  Company Number: 222198

PATIENT
  Age: 84 Year
  Sex: Male
  Weight: 72.1 kg

DRUGS (11)
  1. AVASTIN [Suspect]
     Indication: COLORECTAL CANCER
     Dosage: 5 MG/KG, Q2W, INTRAVENOUS
     Route: 042
     Dates: start: 20050503, end: 20050503
  2. OXALIPLATIN                 (OXALIPLATIN) [Suspect]
     Indication: COLORECTAL CANCER
     Dosage: 85 MG/M2, Q2W, INTRAVENOUS
     Route: 042
     Dates: start: 20050503, end: 20050503
  3. FLUOROURACIL [Suspect]
     Indication: COLORECTAL CANCER METASTATIC
     Dosage: 2400 MG/M2, Q2W, INTRAVENOUS
     Route: 042
     Dates: start: 20050503, end: 20050503
  4. LEUCOVORIN CALCIUM [Suspect]
     Indication: COLORECTAL CANCER
     Dosage: 200 MG/M2, Q3W, INTRAVENOUS
     Route: 042
     Dates: start: 20050503, end: 20050503
  5. CALCIUM/MAGNESIUM OR PLACEBO [Suspect]
     Indication: NEUROPATHY
     Dosage: 1 UNIT, Q2W, INTRAVENOUS
     Route: 042
     Dates: start: 20050503, end: 20050503
  6. RANITIDINE HYDROCHLORIDE [Concomitant]
  7. BENAZEPRIL HYDROCHLORIDE              (BENAZEPRIL HYDROCHLORIDE) [Concomitant]
  8. FUROSEMIDE [Concomitant]
  9. MULTIVITAMIN                      (MULTIVITAMINS NOS) [Concomitant]
  10. METOPROLOL TARTRATE [Concomitant]
  11. LEVOTHYROXINE SODIUM [Concomitant]

REACTIONS (11)
  - ABDOMINAL PAIN [None]
  - ASTHENIA [None]
  - DEHYDRATION [None]
  - DIARRHOEA [None]
  - DYSPNOEA [None]
  - FAILURE TO THRIVE [None]
  - ILEUS [None]
  - INTESTINAL DILATATION [None]
  - METASTASES TO LIVER [None]
  - ORAL INTAKE REDUCED [None]
  - VOMITING [None]
